FAERS Safety Report 14311765 (Version 1)
Quarter: 2017Q4

REPORT INFORMATION
  Report Type: Spontaneous
  Country: GB (occurrence: GB)
  Receive Date: 20171221
  Receipt Date: 20171221
  Transmission Date: 20180321
  Serious: Yes (Life-Threatening, Hospitalization, Other)
  Sender: FDA-Public Use
  Company Number: GB-CIPLA LTD.-2017GB24522

PATIENT

DRUGS (10)
  1. METHYSERGIDE [Suspect]
     Active Substance: METHYSERGIDE
     Dosage: UNK
     Route: 065
  2. TOPIRAMATE. [Suspect]
     Active Substance: TOPIRAMATE
     Dosage: UNK
     Route: 065
  3. ETORICOXIB [Suspect]
     Active Substance: ETORICOXIB
     Dosage: UNK
     Route: 065
  4. AMITRIPTYLINE [Suspect]
     Active Substance: AMITRIPTYLINE
     Dosage: UNK
     Route: 065
  5. CELECOXIB. [Suspect]
     Active Substance: CELECOXIB
     Dosage: UNK
     Route: 065
  6. ROFECOXIB [Suspect]
     Active Substance: ROFECOXIB
     Dosage: UNK
     Route: 065
  7. MELATONIN [Suspect]
     Active Substance: MELATONIN
     Dosage: UNK
     Route: 065
  8. INDOMETHACIN. [Suspect]
     Active Substance: INDOMETHACIN
     Indication: CHRONIC PAROXYSMAL HEMICRANIA
     Dosage: UNK
     Route: 065
  9. VERAPAMIL [Suspect]
     Active Substance: VERAPAMIL HYDROCHLORIDE
     Dosage: UNK
     Route: 065
  10. PIZOTIFEN [Suspect]
     Active Substance: PIZOTYLINE
     Dosage: UNK
     Route: 065

REACTIONS (2)
  - Gastric disorder [Unknown]
  - Drug ineffective [Unknown]
